FAERS Safety Report 5415530-3 (Version None)
Quarter: 2007Q3

REPORT INFORMATION
  Report Type: 
  Country: None (occurrence: None)
  Receive Date: 20070815
  Receipt Date: 20070810
  Transmission Date: 20080115
  Serious: Yes (Hospitalization)
  Sender: FDA-Public Use
  Company Number: A0669468A

PATIENT
  Age: 70 Year
  Sex: Female

DRUGS (21)
  1. COREG [Suspect]
     Indication: HYPERTENSION
     Dosage: 25MG TWICE PER DAY
     Route: 048
     Dates: start: 20040101
  2. SINGULAIR [Concomitant]
  3. CRESTOR [Concomitant]
  4. DIOVAN [Concomitant]
  5. UNSPECIFIED MEDICATION [Concomitant]
  6. RANITIDINE [Concomitant]
  7. HUMALOG [Concomitant]
  8. LANTUS [Concomitant]
  9. PREDNISONE TAB [Concomitant]
  10. MECLIZINE [Concomitant]
  11. DUONEB [Concomitant]
  12. SPIRIVA [Concomitant]
  13. HYDRALAZINE HCL [Concomitant]
  14. FISH OIL [Concomitant]
  15. RITUXAN [Concomitant]
  16. OREGANO OIL [Concomitant]
  17. VITAMIN B COMPLEX CAP [Concomitant]
  18. CENTRUM SILVER [Concomitant]
  19. MAGNESIUM SULFATE [Concomitant]
  20. ALEVE [Concomitant]
  21. STOOL SOFTENER [Concomitant]

REACTIONS (5)
  - BRONCHITIS CHRONIC [None]
  - CHRONIC OBSTRUCTIVE PULMONARY DISEASE [None]
  - LEUKAEMIA [None]
  - MYALGIA [None]
  - RESTLESS LEGS SYNDROME [None]
